FAERS Safety Report 9035167 (Version 1)
Quarter: 2013Q1

REPORT INFORMATION
  Report Type: Report from Study
  Country: US (occurrence: US)
  Receive Date: 20130129
  Receipt Date: 20130129
  Transmission Date: 20140127
  Serious: No
  Sender: FDA-Public Use
  Company Number: US-ABBOTT-12P-163-0895101-00

PATIENT
  Age: 59 Year
  Sex: Female
  Weight: 77.18 kg

DRUGS (19)
  1. HUMIRA 40 MG/0.8 ML PEN [Suspect]
     Indication: RHEUMATOID ARTHRITIS
  2. SEROQUEL [Concomitant]
     Indication: SLEEP DISORDER THERAPY
  3. METHOTREXATE [Concomitant]
     Indication: RHEUMATOID ARTHRITIS
  4. FOLIC ACID [Concomitant]
     Indication: VITAMIN SUPPLEMENTATION
  5. PANTOPRAZOLE [Concomitant]
     Indication: GASTROOESOPHAGEAL REFLUX DISEASE
  6. CLONAZEPAM [Concomitant]
     Indication: ANXIETY
  7. ROPINIROLE [Concomitant]
     Indication: MUSCLE SPASMS
  8. PROMETHAZINE [Concomitant]
     Indication: NAUSEA
  9. ASPIRIN [Concomitant]
     Indication: CARDIAC DISORDER
  10. ASPIRIN [Concomitant]
     Indication: PROPHYLAXIS
  11. MULTIVITAMIN [Concomitant]
     Indication: VITAMIN SUPPLEMENTATION
  12. MAGNESIUM [Concomitant]
     Indication: MINERAL SUPPLEMENTATION
  13. CALCIUM [Concomitant]
     Indication: MINERAL SUPPLEMENTATION
  14. FISH OIL WITH OMEGA 3 [Concomitant]
     Indication: SUPPLEMENTATION THERAPY
  15. VITAMIN D [Concomitant]
     Indication: VITAMIN SUPPLEMENTATION
  16. ETODOLAC [Concomitant]
     Indication: PAIN
  17. CYCLOBENZAPRINE [Concomitant]
     Indication: MUSCLE SPASMS
  18. EVOXAC [Concomitant]
     Indication: DRY MOUTH
  19. CYMBALTA [Concomitant]
     Indication: DEPRESSION

REACTIONS (15)
  - Musculoskeletal stiffness [Recovering/Resolving]
  - Mobility decreased [Not Recovered/Not Resolved]
  - Dysstasia [Not Recovered/Not Resolved]
  - Insomnia [Recovering/Resolving]
  - Muscle spasms [Recovering/Resolving]
  - Muscle spasms [Recovering/Resolving]
  - Pain of skin [Recovering/Resolving]
  - Arthralgia [Recovering/Resolving]
  - Urinary tract infection [Not Recovered/Not Resolved]
  - Blood urine present [Unknown]
  - Abdominal pain [Recovering/Resolving]
  - Burning sensation [Recovering/Resolving]
  - Muscle spasms [Recovering/Resolving]
  - Arthritis [Recovered/Resolved]
  - Headache [Recovering/Resolving]
